FAERS Safety Report 7493218-5 (Version None)
Quarter: 2011Q2

REPORT INFORMATION
  Report Type: 
  Country: None (occurrence: None)
  Receive Date: 20110520
  Receipt Date: 20110517
  Transmission Date: 20111010
  Serious: Yes (Hospitalization)
  Sender: FDA-Public Use
  Company Number: JP-PFIZER INC-2010136947

PATIENT
  Age: 73 Year
  Sex: Male
  Weight: 73 kg

DRUGS (4)
  1. PROHEPARUM [Concomitant]
     Dosage: 1 DF, 3X/DAY
     Route: 048
     Dates: start: 20100928
  2. NORVASC [Concomitant]
     Dosage: 1 DF, 1X/DAY
     Route: 048
     Dates: start: 20101012
  3. SUNITINIB MALATE [Suspect]
     Indication: RENAL CELL CARCINOMA
     Dosage: 25 MG, 1X/DAY
     Route: 048
     Dates: start: 20100928, end: 20101025
  4. URSO 250 [Concomitant]
     Dosage: 1 DF, 3X/DAY
     Route: 048
     Dates: start: 20100928

REACTIONS (1)
  - PNEUMATOSIS INTESTINALIS [None]
